FAERS Safety Report 9583386 (Version 1)
Quarter: 2013Q4

REPORT INFORMATION
  Report Type: Spontaneous
  Country: US (occurrence: US)
  Receive Date: 20131002
  Receipt Date: 20131002
  Transmission Date: 20140711
  Serious: No
  Sender: FDA-Public Use
  Company Number: US-AMGEN-USASP2013046610

PATIENT
  Age: 60 Year
  Sex: Female
  Weight: 70.3 kg

DRUGS (23)
  1. ENBREL [Suspect]
     Indication: PRODUCT USED FOR UNKNOWN INDICATION
     Dosage: 50 MG, QWK
     Route: 058
  2. ACTONEL [Concomitant]
     Dosage: 5 MG, UNK
  3. PROAIR HFA [Concomitant]
     Dosage: UNK
  4. LEFLUNOMIDE [Concomitant]
     Dosage: 20 MG, UNK
  5. FOLIC ACID [Concomitant]
     Dosage: 1 MG, UNK
  6. METHOTREXATE [Concomitant]
     Dosage: 2.5 MG, UNK
  7. HYDROXYCHLOROQUINE [Concomitant]
     Dosage: 200 MG, UNK
  8. RESTASIS [Concomitant]
     Dosage: UNK
  9. VAGIFEM [Concomitant]
     Dosage: 10 MUG, UNK
  10. OMEPRAZOLE [Concomitant]
     Dosage: 10 MG, UNK
  11. NASONEX [Concomitant]
     Dosage: 50 MUG/AC, UNK
  12. ALBUTEROL                          /00139501/ [Concomitant]
     Dosage: 90 MUG, UNK
  13. PREVIDENT [Concomitant]
     Dosage: 5000 PLS
  14. FISH OIL [Concomitant]
     Dosage: UNK
  15. SENIOR [Concomitant]
     Dosage: UNK
  16. VITAMIN C                          /00008001/ [Concomitant]
     Dosage: 500 MG, UNK
  17. VITAMIN D                          /00107901/ [Concomitant]
     Dosage: 1000 UNIT, UNK
  18. MAGNESIUM [Concomitant]
     Dosage: 400 MG, UNK
  19. CALCIUM CITRATE [Concomitant]
     Dosage: 200 MG, UNK
  20. BIOTIN [Concomitant]
     Dosage: 5000
  21. GLUCOSAMIN CHONDROITIN             /01430901/ [Concomitant]
     Dosage: UNK
  22. MIRALAX                            /00754501/ [Concomitant]
     Dosage: 3350 UNK, NF
  23. TUMS                               /00193601/ [Concomitant]
     Dosage: 500 MG, UNK

REACTIONS (4)
  - Injection site rash [Unknown]
  - Injection site swelling [Unknown]
  - Injection site pruritus [Unknown]
  - Injection site discolouration [Unknown]
